FAERS Safety Report 5704465-4 (Version None)
Quarter: 2008Q2

REPORT INFORMATION
  Report Type: 
  Country: None (occurrence: None)
  Receive Date: 20080411
  Receipt Date: 20080411
  Transmission Date: 20081010
  Serious: Yes (Life-Threatening, Other)
  Sender: FDA-Public Use
  Company Number: None

PATIENT
  Age: 13 Year
  Sex: Male
  Weight: 73.9363 kg

DRUGS (1)
  1. SINGULAIR [Suspect]
     Indication: ASTHMA
     Dosage: 5MG QD PO
     Route: 048
     Dates: start: 20011101, end: 20060501

REACTIONS (10)
  - ABNORMAL BEHAVIOUR [None]
  - ANXIETY [None]
  - CRYING [None]
  - EMOTIONAL DISORDER [None]
  - FEAR [None]
  - FEELING OF DESPAIR [None]
  - GASTRIC DISORDER [None]
  - GENERAL PHYSICAL CONDITION ABNORMAL [None]
  - MUSCLE SPASMS [None]
  - SUICIDAL IDEATION [None]
